FAERS Safety Report 14874076 (Version 1)
Quarter: 2018Q2

REPORT INFORMATION
  Report Type: Spontaneous
  Country: US (occurrence: US)
  Receive Date: 20180424
  Receipt Date: 20180424
  Transmission Date: 20180711
  Serious: Yes (Hospitalization)
  Sender: FDA-Public Use
  Company Number: None

PATIENT
  Age: 66 Year
  Sex: Male

DRUGS (3)
  1. ELIQUIS [Concomitant]
     Active Substance: APIXABAN
  2. MYFORTIC [Suspect]
     Active Substance: MYCOPHENOLATE SODIUM
     Indication: RENAL TRANSPLANT
     Route: 048
  3. TACROLIMUS 1MG [Concomitant]
     Active Substance: TACROLIMUS

REACTIONS (3)
  - Gastrointestinal disorder [None]
  - Haemoglobin decreased [None]
  - Condition aggravated [None]

NARRATIVE: CASE EVENT DATE: 20180409
